FAERS Safety Report 7518654-X (Version None)
Quarter: 2011Q2

REPORT INFORMATION
  Report Type: 
  Country: None (occurrence: None)
  Receive Date: 20110601
  Receipt Date: 20110601
  Transmission Date: 20111010
  Serious: No
  Sender: FDA-Public Use
  Company Number: None

PATIENT
  Age: 64 Year
  Sex: Male
  Weight: 63.5036 kg

DRUGS (1)
  1. CIPROFLOXACIN [Suspect]
     Indication: BACTERIAL INFECTION
     Dosage: 1 TABLET TWICE DAILY FOR 10 DAYS PO
     Route: 048
     Dates: start: 20110527, end: 20110530

REACTIONS (3)
  - PHOTOPSIA [None]
  - RETINAL TEAR [None]
  - VITREOUS FLOATERS [None]
